FAERS Safety Report 18694383 (Version 3)
Quarter: 2021Q1

REPORT INFORMATION
  Report Type: Report from Study
  Country: SG (occurrence: SG)
  Receive Date: 20210104
  Receipt Date: 20210202
  Transmission Date: 20210419
  Serious: Yes (Other)
  Sender: FDA-Public Use
  Company Number: NVSC2020SG343086

PATIENT
  Age: 69 Year
  Sex: Female
  Weight: 59 kg

DRUGS (10)
  1. OSIMERTINIB. [Concomitant]
     Active Substance: OSIMERTINIB
     Indication: EGFR STATUS ASSAY
     Dosage: UNK
     Route: 065
     Dates: start: 201906, end: 202010
  2. LINAGLIPTIN [Concomitant]
     Active Substance: LINAGLIPTIN
     Indication: PRODUCT USED FOR UNKNOWN INDICATION
     Dosage: 5 MG, QD
     Route: 065
  3. METFORMIN [Concomitant]
     Active Substance: METFORMIN HYDROCHLORIDE
     Indication: PRODUCT USED FOR UNKNOWN INDICATION
     Dosage: 500 MG, BID
     Route: 065
  4. INC280 [Suspect]
     Active Substance: CAPMATINIB
     Indication: MYELOFIBROSIS
     Dosage: 400 MG, BID
     Route: 048
     Dates: start: 20201205, end: 20201222
  5. INC280 [Suspect]
     Active Substance: CAPMATINIB
     Dosage: 300 MG, BID
     Route: 048
     Dates: start: 20201223
  6. OSIMERTINIB. [Concomitant]
     Active Substance: OSIMERTINIB
     Dosage: 80 MG, QD
     Route: 065
     Dates: start: 20201202, end: 20201222
  7. VEMLIDY [Concomitant]
     Active Substance: TENOFOVIR ALAFENAMIDE FUMARATE
     Indication: PRODUCT USED FOR UNKNOWN INDICATION
     Dosage: 25 MG, QD
     Route: 065
  8. GLICLAZIDE MR STADA [Concomitant]
     Indication: PRODUCT USED FOR UNKNOWN INDICATION
     Dosage: 30 MG, QD
     Route: 065
  9. HYDROCORTISONE. [Concomitant]
     Active Substance: HYDROCORTISONE
     Indication: PRODUCT USED FOR UNKNOWN INDICATION
     Dosage: 10 MG, BID
     Route: 065
  10. INC280 [Suspect]
     Active Substance: CAPMATINIB
     Dosage: 300 MG, BID
     Route: 048

REACTIONS (1)
  - Thrombocytopenia [Unknown]

NARRATIVE: CASE EVENT DATE: 20201223
